FAERS Safety Report 12448035 (Version 1)
Quarter: 2016Q2

REPORT INFORMATION
  Report Type: Spontaneous
  Country: FR (occurrence: FR)
  Receive Date: 20160608
  Receipt Date: 20160608
  Transmission Date: 20160815
  Serious: Yes (Other)
  Sender: FDA-Public Use
  Company Number: FR-GILEAD-2016-0216869

PATIENT
  Age: 33 Year
  Sex: Female

DRUGS (17)
  1. FLUCONAZOLE. [Concomitant]
     Active Substance: FLUCONAZOLE
     Dosage: 800 MG, QD
  2. HEPARIN [Concomitant]
     Active Substance: HEPARIN SODIUM
  3. DEXAMETHASONE. [Concomitant]
     Active Substance: DEXAMETHASONE
     Dosage: 24 UNK, UNK
     Dates: start: 201211
  4. STAVUDINE. [Concomitant]
     Active Substance: STAVUDINE
     Dosage: UNK
     Dates: start: 201103, end: 201106
  5. LAMIVUDINE. [Concomitant]
     Active Substance: LAMIVUDINE
     Dosage: UNK
     Dates: start: 201103, end: 201106
  6. PREDNISOLONE. [Concomitant]
     Active Substance: PREDNISOLONE
     Dosage: 1 MG/KG, QD
     Dates: start: 201108, end: 201110
  7. ATRIPLA [Suspect]
     Active Substance: EFAVIRENZ\EMTRICITABINE\TENOFOVIR DISOPROXIL FUMARATE
     Indication: HIV INFECTION
     Dosage: UNK
     Route: 065
     Dates: start: 201106
  8. FLUCONAZOLE. [Concomitant]
     Active Substance: FLUCONAZOLE
     Dosage: 200 MG, QD
  9. AMBISOME [Concomitant]
     Active Substance: AMPHOTERICIN B
     Indication: CRYPTOCOCCOSIS
     Dosage: 3 MG/KG, QD
     Dates: start: 201106
  10. FLUCYTOSINE. [Concomitant]
     Active Substance: FLUCYTOSINE
     Dosage: UNK
     Dates: start: 201106
  11. EFAVIRENZ [Concomitant]
     Active Substance: EFAVIRENZ
     Dosage: UNK
     Dates: start: 201103, end: 201106
  12. FLUCONAZOLE. [Concomitant]
     Active Substance: FLUCONAZOLE
     Dosage: 200 MG, QD
  13. FLUCYTOSINE. [Concomitant]
     Active Substance: FLUCYTOSINE
     Dosage: UNK
     Dates: start: 201201
  14. ISONIAZID. [Concomitant]
     Active Substance: ISONIAZID
     Dosage: UNK
  15. DEXAMETHASONE. [Concomitant]
     Active Substance: DEXAMETHASONE
     Dosage: 24 MG, QD
     Dates: start: 201201, end: 201205
  16. AMBISOME [Concomitant]
     Active Substance: AMPHOTERICIN B
     Dosage: UNK
     Dates: start: 201201
  17. FLUCONAZOLE. [Concomitant]
     Active Substance: FLUCONAZOLE
     Dosage: UNK UNK, QD

REACTIONS (1)
  - Bipolar disorder [Unknown]
